FAERS Safety Report 24559258 (Version 2)
Quarter: 2025Q1

REPORT INFORMATION
  Report Type: Spontaneous
  Country: US (occurrence: US)
  Receive Date: 20241029
  Receipt Date: 20250214
  Transmission Date: 20250408
  Serious: Yes (Other)
  Sender: AUROBINDO
  Company Number: US-AUROBINDO-AUR-APL-2024-052145

PATIENT
  Age: 17 Year
  Sex: Female

DRUGS (1)
  1. WARFARIN [Suspect]
     Active Substance: WARFARIN
     Indication: Takayasu^s arteritis
     Route: 065

REACTIONS (3)
  - Ovarian cyst ruptured [Unknown]
  - Retroperitoneal haemorrhage [Unknown]
  - Drug ineffective [Unknown]
